FAERS Safety Report 11684673 (Version 2)
Quarter: 2015Q4

REPORT INFORMATION
  Report Type: Spontaneous
  Country: US (occurrence: US)
  Receive Date: 20151029
  Receipt Date: 20151116
  Transmission Date: 20160304
  Serious: Yes (Hospitalization)
  Sender: FDA-Public Use
  Company Number: US-UNITED THERAPEUTICS-UNT-2015-013279

PATIENT
  Age: 48 Year
  Sex: Female
  Weight: 98.41 kg

DRUGS (2)
  1. REMODULIN [Suspect]
     Active Substance: TREPROSTINIL
     Indication: PULMONARY HYPERTENSION
     Dosage: 0.045 ?G/KG/MIN, CONTINUING
     Route: 041
     Dates: start: 20111129
  2. ELIQUIS [Concomitant]
     Active Substance: APIXABAN
     Indication: PRODUCT USED FOR UNKNOWN INDICATION

REACTIONS (4)
  - Injection site haemorrhage [Recovered/Resolved]
  - Device dislocation [Recovered/Resolved]
  - Thrombosis [Not Recovered/Not Resolved]
  - Injection site pustule [Recovered/Resolved]

NARRATIVE: CASE EVENT DATE: 201510
